FAERS Safety Report 8487598-1 (Version None)
Quarter: 2012Q3

REPORT INFORMATION
  Report Type: 
  Country: None (occurrence: None)
  Receive Date: 20120705
  Receipt Date: 20120629
  Transmission Date: 20120928
  Serious: Yes (Other)
  Sender: FDA-Public Use
  Company Number: JP-BAYER-2012-065584

PATIENT
  Age: 60 Year
  Sex: Female
  Weight: 40 kg

DRUGS (4)
  1. NEXAVAR [Suspect]
     Dosage: 200 MG, BID
     Route: 048
  2. NEXAVAR [Suspect]
     Indication: ANGIOSARCOMA RECURRENT
     Dosage: 400 MG, BID
     Route: 048
  3. NEXAVAR [Suspect]
     Dosage: 200 MG, BID
     Route: 048
  4. NEXAVAR [Suspect]
     Dosage: 400 MG, BID
     Route: 048

REACTIONS (4)
  - HYPOTHYROIDISM [None]
  - PNEUMATOSIS INTESTINALIS [None]
  - LEUKOPENIA [None]
  - ANGIOSARCOMA RECURRENT [None]
